FAERS Safety Report 5788117-0 (Version None)
Quarter: 2008Q2

REPORT INFORMATION
  Report Type: 
  Country: None (occurrence: None)
  Receive Date: 20080625
  Receipt Date: 20080620
  Transmission Date: 20081010
  Serious: No
  Sender: FDA-Public Use
  Company Number: US-BOEHRINGER INGELHEIM GMBH, GERMANY-2008-BP-09659BP

PATIENT
  Sex: Male

DRUGS (6)
  1. MIRAPEX [Suspect]
     Indication: RESTLESS LEGS SYNDROME
     Route: 048
     Dates: start: 20080617
  2. WARFARIN SODIUM [Concomitant]
     Indication: CARDIAC DISORDER
  3. AMIODARONE HCL [Concomitant]
     Indication: CARDIAC DISORDER
  4. SPIRONOLACTONE [Concomitant]
     Indication: CARDIAC DISORDER
  5. ALTACE [Concomitant]
     Indication: CARDIAC DISORDER
  6. COREG [Concomitant]
     Indication: CARDIAC DISORDER

REACTIONS (2)
  - NAUSEA [None]
  - OEDEMA PERIPHERAL [None]
